FAERS Safety Report 25058682 (Version 2)
Quarter: 2025Q1

REPORT INFORMATION
  Report Type: Spontaneous
  Country: US (occurrence: US)
  Receive Date: 20250310
  Receipt Date: 20250314
  Transmission Date: 20250409
  Serious: No
  Sender: CIPLA
  Company Number: US-CIPLA LTD.-2025US02763

PATIENT

DRUGS (2)
  1. PREGABALIN [Suspect]
     Active Substance: PREGABALIN
     Indication: Pain
     Route: 048
  2. PREGABALIN [Suspect]
     Active Substance: PREGABALIN
     Route: 048

REACTIONS (4)
  - Intentional product use issue [Unknown]
  - Wrong technique in product usage process [Unknown]
  - Drug level below therapeutic [Unknown]
  - Product container seal issue [Unknown]
